FAERS Safety Report 5002696-2 (Version None)
Quarter: 2006Q2

REPORT INFORMATION
  Report Type: 
  Country: None (occurrence: None)
  Receive Date: 20060510
  Receipt Date: 20060428
  Transmission Date: 20061013
  Serious: Yes (Other)
  Sender: FDA-Public Use
  Company Number: 2006057988

PATIENT
  Sex: Female

DRUGS (1)
  1. PROSTIN E2 [Suspect]
     Indication: ILL-DEFINED DISORDER
     Dosage: VAGINAL
     Route: 067

REACTIONS (2)
  - CAESAREAN SECTION [None]
  - DRUG EXPOSURE DURING PREGNANCY [None]
